FAERS Safety Report 4676498-0 (Version None)
Quarter: 2005Q2

REPORT INFORMATION
  Report Type: 
  Country: None (occurrence: None)
  Receive Date: 20050525
  Receipt Date: 20050513
  Transmission Date: 20051028
  Serious: Yes (Hospitalization)
  Sender: FDA-Public Use
  Company Number: 2005075302

PATIENT
  Sex: Female

DRUGS (1)
  1. CABERGOLINE [Suspect]
     Indication: PARKINSON'S DISEASE
     Dosage: 6 MG DAILY, ORAL    YEARS AGO
     Route: 048

REACTIONS (2)
  - HEART VALVE INSUFFICIENCY [None]
  - PERICARDITIS CONSTRICTIVE [None]
